FAERS Safety Report 8972205 (Version 6)
Quarter: 2013Q2

REPORT INFORMATION
  Report Type: Spontaneous
  Country: US (occurrence: US)
  Receive Date: 20121218
  Receipt Date: 20130412
  Transmission Date: 20140414
  Serious: Yes (Hospitalization, Disabling, Other)
  Sender: FDA-Public Use
  Company Number: US-009507513-1202USA00846

PATIENT
  Sex: Female
  Weight: 59.41 kg

DRUGS (2)
  1. FOSAMAX [Suspect]
     Indication: OSTEOPOROSIS
     Dosage: 70 MG, QW
     Route: 048
     Dates: start: 200308, end: 200711
  2. ALENDRONATE SODIUM [Suspect]
     Indication: OSTEOPOROSIS
     Dosage: 70 MG, QW
     Route: 048
     Dates: start: 200712, end: 200912

REACTIONS (25)
  - Femur fracture [Recovering/Resolving]
  - Intramedullary rod insertion [Unknown]
  - Fall [Unknown]
  - Hysterectomy [Unknown]
  - Limb operation [Unknown]
  - Carpal tunnel syndrome [Unknown]
  - Breast cancer [Recovered/Resolved]
  - Back pain [Not Recovered/Not Resolved]
  - Ear infection [Not Recovered/Not Resolved]
  - Biopsy breast [Unknown]
  - Hypoaesthesia [Unknown]
  - Hand fracture [Unknown]
  - Emphysema [Unknown]
  - Pernicious anaemia [Unknown]
  - Gastric disorder [Unknown]
  - Bone disorder [Unknown]
  - Bursitis [Unknown]
  - Hypertension [Unknown]
  - Chronic obstructive pulmonary disease [Not Recovered/Not Resolved]
  - Breast lump removal [Unknown]
  - Medical device removal [Unknown]
  - Fracture nonunion [Not Recovered/Not Resolved]
  - Arthralgia [Unknown]
  - Gastrooesophageal reflux disease [Unknown]
  - Oesophageal discomfort [Unknown]
